FAERS Safety Report 21907565 (Version 1)
Quarter: 2023Q1

REPORT INFORMATION
  Report Type: Other
  Country: CA (occurrence: None)
  Receive Date: 20230125
  Receipt Date: 20230125
  Transmission Date: 20230417
  Serious: Yes (Other)
  Sender: FDA-Public Use
  Company Number: CA-ROCHE-3267351

PATIENT
  Sex: Male

DRUGS (16)
  1. ACTEMRA [Suspect]
     Active Substance: TOCILIZUMAB
     Indication: Rheumatoid arthritis
     Route: 058
     Dates: start: 20221006, end: 202212
  2. ELIQUIS [Concomitant]
     Active Substance: APIXABAN
  3. FUROSEMIDE [Concomitant]
     Active Substance: FUROSEMIDE
  4. OLODATEROL HYDROCHLORIDE\TIOTROPIUM BROMIDE MONOHYDRATE [Concomitant]
     Active Substance: OLODATEROL HYDROCHLORIDE\TIOTROPIUM BROMIDE MONOHYDRATE
  5. MOXIFLOXACIN [Concomitant]
     Active Substance: MOXIFLOXACIN
     Indication: Infection
  6. NADOLOL [Concomitant]
     Active Substance: NADOLOL
     Indication: Blood pressure measurement
  7. PANTOPRAZOLE [Concomitant]
     Active Substance: PANTOPRAZOLE
     Indication: Ulcer
  8. PREDNISONE [Concomitant]
     Active Substance: PREDNISONE
  9. RISEDRONATE SODIUM [Concomitant]
     Active Substance: RISEDRONATE SODIUM
     Indication: Osteoporosis
  10. ROSUVASTATIN [Concomitant]
     Active Substance: ROSUVASTATIN
     Indication: Blood cholesterol
  11. ALBUTEROL [Concomitant]
     Active Substance: ALBUTEROL
     Indication: Asthma
  12. TAMSULOSIN [Concomitant]
     Active Substance: TAMSULOSIN
  13. ZOPICLONE [Concomitant]
     Active Substance: ZOPICLONE
  14. CORTISONE [Concomitant]
     Active Substance: CORTISONE
  15. LYDERM (CANADA) [Concomitant]
  16. CALCIUM [Concomitant]
     Active Substance: CALCIUM

REACTIONS (3)
  - Hepatotoxicity [Unknown]
  - Hypokalaemia [Unknown]
  - Blood bilirubin increased [Unknown]
